FAERS Safety Report 14125157 (Version 1)
Quarter: 2017Q4

REPORT INFORMATION
  Report Type: Report from Study
  Country: MY (occurrence: MY)
  Receive Date: 20171025
  Receipt Date: 20171025
  Transmission Date: 20180321
  Serious: Yes (Death, Hospitalization, Other)
  Sender: FDA-Public Use
  Company Number: PHHY2017MY152112

PATIENT
  Age: 72 Year
  Sex: Male

DRUGS (1)
  1. GLIVEC [Suspect]
     Active Substance: IMATINIB MESYLATE
     Indication: GASTROINTESTINAL STROMAL TUMOUR
     Dosage: 600 MG, UNK
     Route: 065
     Dates: start: 20060814, end: 201704

REACTIONS (10)
  - Death [Fatal]
  - Pericardial effusion [Unknown]
  - Ascites [Unknown]
  - Malignant neoplasm progression [Unknown]
  - Spinal compression fracture [Unknown]
  - Gastrointestinal wall thickening [Unknown]
  - Pathological fracture [Unknown]
  - Gastrointestinal stromal tumour [Unknown]
  - Pleural effusion [Unknown]
  - General physical health deterioration [Unknown]

NARRATIVE: CASE EVENT DATE: 20170422
